FAERS Safety Report 23234334 (Version 1)
Quarter: 2023Q4

REPORT INFORMATION
  Report Type: Spontaneous
  Country: US (occurrence: None)
  Receive Date: 20231127
  Receipt Date: 20231127
  Transmission Date: 20240109
  Serious: Yes (Hospitalization)
  Sender: FDA-Public Use
  Company Number: None

PATIENT
  Age: 72 Year
  Sex: Female

DRUGS (4)
  1. DOFETILIDE [Suspect]
     Active Substance: DOFETILIDE
     Indication: Atrial fibrillation
     Dosage: FREQUENCY : TWICE A DAY;?
     Route: 048
     Dates: start: 202112
  2. TADALAFIL [Concomitant]
  3. OPSUMIT [Concomitant]
     Active Substance: MACITENTAN
  4. REMODULIN VIDV [Concomitant]

REACTIONS (2)
  - Pleural effusion [None]
  - Infection [None]

NARRATIVE: CASE EVENT DATE: 20231125
